FAERS Safety Report 17115757 (Version 1)
Quarter: 2019Q4

REPORT INFORMATION
  Report Type: Spontaneous
  Country: US (occurrence: US)
  Receive Date: 20191204
  Receipt Date: 20191204
  Transmission Date: 20200122
  Serious: Yes (Other)
  Sender: FDA-Public Use
  Company Number: None

PATIENT
  Age: 12 Year
  Sex: Male
  Weight: 88 kg

DRUGS (1)
  1. SPINRAZA [Suspect]
     Active Substance: NUSINERSEN
     Indication: SPINAL MUSCULAR ATROPHY
     Dosage: ?          OTHER FREQUENCY:EVERY 12 WEEKS;?
     Route: 037
     Dates: start: 20181114

REACTIONS (2)
  - CSF pressure increased [None]
  - Lumbar puncture abnormal [None]

NARRATIVE: CASE EVENT DATE: 20190814
